FAERS Safety Report 15842250 (Version 1)
Quarter: 2019Q1

REPORT INFORMATION
  Report Type: Spontaneous
  Country: HU (occurrence: HU)
  Receive Date: 20190117
  Receipt Date: 20190117
  Transmission Date: 20190417
  Serious: Yes (Disabling)
  Sender: FDA-Public Use
  Company Number: None

PATIENT
  Age: 30 Year
  Sex: Female
  Weight: 80 kg

DRUGS (3)
  1. NEXPLANON [Suspect]
     Active Substance: ETONOGESTREL
     Indication: CONTRACEPTION
     Dosage: ?          QUANTITY:1 IMPLANT ROD;OTHER FREQUENCY:INSIDE BODY 24/7;?
     Route: 058
     Dates: start: 20180607, end: 20190117
  2. KETALAR IN 100 ML NACL [Concomitant]
  3. LIDOCAIN OINTMENT [Concomitant]

REACTIONS (4)
  - Major depression [None]
  - Migraine [None]
  - Complication associated with device [None]
  - Performance status decreased [None]

NARRATIVE: CASE EVENT DATE: 20190108
